FAERS Safety Report 4772865-5 (Version None)
Quarter: 2005Q3

REPORT INFORMATION
  Report Type: 
  Country: None (occurrence: None)
  Receive Date: 20050915
  Receipt Date: 20050915
  Transmission Date: 20060218
  Serious: Yes (Other)
  Sender: FDA-Public Use
  Company Number: None

PATIENT
  Sex: Female
  Weight: 72.5755 kg

DRUGS (4)
  1. VERSED [Suspect]
     Indication: CATHETERISATION CARDIAC
     Dosage: EACH PROCEDURE IV BOLUS
     Dates: start: 19970101
  2. VERSED [Suspect]
     Indication: SURGERY
     Dosage: EACH PROCEDURE IV BOLUS
     Dates: start: 19970101
  3. SERZONE [Concomitant]
  4. EFFEXSOR XL [Concomitant]

REACTIONS (5)
  - COGNITIVE DISORDER [None]
  - DEPRESSED LEVEL OF CONSCIOUSNESS [None]
  - FATIGUE [None]
  - MEMORY IMPAIRMENT [None]
  - MENTAL IMPAIRMENT [None]
